FAERS Safety Report 4267585-X (Version None)
Quarter: 2004Q1

REPORT INFORMATION
  Report Type: 
  Country: None (occurrence: None)
  Receive Date: 20040109
  Receipt Date: 20030917
  Transmission Date: 20041129
  Serious: No
  Sender: FDA-Public Use
  Company Number: US-GLAXOSMITHKLINE-A0426358A

PATIENT
  Sex: Male

DRUGS (6)
  1. WELLBUTRIN [Suspect]
     Route: 048
  2. PHENOBARBITAL TAB [Concomitant]
  3. PROPOXYPHENE HCL [Concomitant]
  4. VICODIN [Concomitant]
  5. POTASSIUM BROMIDE [Concomitant]
  6. CELEXA [Concomitant]

REACTIONS (1)
  - ABNORMAL BEHAVIOUR [None]
